FAERS Safety Report 6495309-4 (Version None)
Quarter: 2009Q4

REPORT INFORMATION
  Report Type: 
  Country: None (occurrence: None)
  Receive Date: 20091214
  Receipt Date: 20090528
  Transmission Date: 20100525
  Serious: No
  Sender: FDA-Public Use
  Company Number: US-BRISTOL-MYERS SQUIBB COMPANY-14640049

PATIENT
  Age: 31 Year
  Sex: Male

DRUGS (1)
  1. ABILIFY [Suspect]
     Indication: SCHIZOPHRENIA, PARANOID TYPE
     Dosage: STARTED WITH 10 MG/D ON 09-MAR-2009. DOSE INCREASED TO 20MG/D AFTER 1 WEEK
     Dates: start: 20090301

REACTIONS (1)
  - LOSS OF LIBIDO [None]
